FAERS Safety Report 6092841-2 (Version None)
Quarter: 2009Q1

REPORT INFORMATION
  Report Type: 
  Country: None (occurrence: None)
  Receive Date: 20090225
  Receipt Date: 20090218
  Transmission Date: 20090719
  Serious: Yes (Hospitalization, Other)
  Sender: FDA-Public Use
  Company Number: AU-ROXANE LABORATORIES, INC.-2009-RO-00163RO

PATIENT
  Age: 46 Year
  Sex: Male

DRUGS (9)
  1. AZATHIOPRINE [Suspect]
     Indication: COLITIS ULCERATIVE
     Dosage: 100MG
  2. AZATHIOPRINE [Suspect]
  3. PREDNISOLONE [Suspect]
     Indication: COLITIS ULCERATIVE
     Dosage: 50MG
  4. PREDNISOLONE [Suspect]
     Dosage: 15MG
  5. PREDNISOLONE [Suspect]
     Dosage: 75MG
  6. CEFTRIAXONE [Suspect]
     Indication: SEPSIS
     Route: 042
  7. FLUCLOXACILLIN [Suspect]
     Indication: SEPSIS
  8. SULFASALAZINE [Concomitant]
     Indication: COLITIS ULCERATIVE
     Route: 048
  9. 5-AMINOSALICYLATE [Concomitant]
     Indication: COLITIS ULCERATIVE
     Route: 054

REACTIONS (4)
  - ACUTE FEBRILE NEUTROPHILIC DERMATOSIS [None]
  - C-REACTIVE PROTEIN INCREASED [None]
  - DRUG HYPERSENSITIVITY [None]
  - PLEURAL EFFUSION [None]
